FAERS Safety Report 19454653 (Version 3)
Quarter: 2021Q4

REPORT INFORMATION
  Report Type: Spontaneous
  Country: SI (occurrence: None)
  Receive Date: 20210623
  Receipt Date: 20211207
  Transmission Date: 20220304
  Serious: Yes (Other)
  Sender: FDA-Public Use
  Company Number: 2021A494408

PATIENT
  Age: 48 Year
  Sex: Female

DRUGS (10)
  1. FULVESTRANT [Suspect]
     Active Substance: FULVESTRANT
     Indication: Invasive lobular breast carcinoma
     Dosage: UNKNOWN
     Route: 065
     Dates: start: 202105
  2. RIBOCICLIB [Suspect]
     Active Substance: RIBOCICLIB
     Indication: Invasive lobular breast carcinoma
     Dosage: UNKNOWN
     Route: 065
     Dates: start: 2019
  3. LETROZOLE [Suspect]
     Active Substance: LETROZOLE
     Indication: Invasive lobular breast carcinoma
     Dosage: UNKNOWN
     Route: 065
  4. ALPELISIB [Suspect]
     Active Substance: ALPELISIB
     Indication: Invasive lobular breast carcinoma
     Dosage: UNKNOWN
     Route: 065
     Dates: start: 202105
  5. ALPELISIB [Suspect]
     Active Substance: ALPELISIB
     Indication: Invasive lobular breast carcinoma
     Dosage: 300 MG 14 DAYS AFTER DISCONTINUATION)
     Route: 065
  6. CAPECITABINE [Concomitant]
     Active Substance: CAPECITABINE
     Indication: Invasive lobular breast carcinoma
     Dosage: UNK
     Route: 065
     Dates: end: 202011
  7. MEDROL [Concomitant]
     Active Substance: METHYLPREDNISOLONE
     Indication: Invasive lobular breast carcinoma
     Dosage: 4 MG
     Route: 065
  8. ZOLEDRONIC ACID [Concomitant]
     Active Substance: ZOLEDRONIC ACID
     Indication: Invasive lobular breast carcinoma
     Dosage: UNK
     Route: 065
     Dates: end: 202105
  9. CETIRIZINE HYDROCHLORIDE [Concomitant]
     Active Substance: CETIRIZINE HYDROCHLORIDE
     Indication: Invasive lobular breast carcinoma
     Dosage: UNK
     Route: 065
  10. OLAPARIB [Concomitant]
     Active Substance: OLAPARIB
     Indication: Invasive lobular breast carcinoma
     Dosage: UNK
     Route: 065
     Dates: end: 202105

REACTIONS (16)
  - Metastases to bone [Unknown]
  - Metastases to pleura [Unknown]
  - Delusion [Recovered/Resolved]
  - Tongue discomfort [Recovering/Resolving]
  - Bone lesion [Unknown]
  - Oral disorder [Recovering/Resolving]
  - Pleural effusion [Unknown]
  - Lip disorder [Recovering/Resolving]
  - Negative thoughts [Recovered/Resolved]
  - Rash [Recovering/Resolving]
  - Skin burning sensation [Recovering/Resolving]
  - Pruritus [Recovering/Resolving]
  - Headache [Unknown]
  - Vomiting [Unknown]
  - Diarrhoea [Unknown]
  - Oral pruritus [Unknown]

NARRATIVE: CASE EVENT DATE: 20201101
